FAERS Safety Report 12757349 (Version 9)
Quarter: 2017Q1

REPORT INFORMATION
  Report Type: Report from Study
  Country: US (occurrence: US)
  Receive Date: 20160919
  Receipt Date: 20170309
  Transmission Date: 20170428
  Serious: Yes (Hospitalization, Congenital Anomaly, Other)
  Sender: FDA-Public Use
  Company Number: US-GILEAD-2016-0233694

PATIENT
  Age: 36 Year
  Sex: Male
  Weight: 58.5 kg

DRUGS (3)
  1. AMBRISENTAN [Suspect]
     Active Substance: AMBRISENTAN
     Indication: SICKLE CELL ANAEMIA
     Dosage: 10 MG, QD
     Route: 065
  2. TYVASO [Concomitant]
     Active Substance: TREPROSTINIL
  3. AMBRISENTAN [Suspect]
     Active Substance: AMBRISENTAN
     Indication: PULMONARY HYPERTENSION
     Dosage: 5 MG, QD
     Route: 065
     Dates: start: 20160914

REACTIONS (14)
  - Oropharyngeal pain [Unknown]
  - Sickle cell anaemia [Unknown]
  - Platelet count decreased [Unknown]
  - Cough [Unknown]
  - Nausea [Not Recovered/Not Resolved]
  - Throat irritation [Recovered/Resolved]
  - Unevaluable event [Unknown]
  - Red blood cell count decreased [Not Recovered/Not Resolved]
  - Nausea [Recovered/Resolved]
  - Nasal congestion [Unknown]
  - Sinusitis [Not Recovered/Not Resolved]
  - Fluid retention [Unknown]
  - Painful respiration [Recovered/Resolved]
  - Cough [Recovered/Resolved]
